FAERS Safety Report 5002201-0 (Version None)
Quarter: 2006Q2

REPORT INFORMATION
  Report Type: 
  Country: None (occurrence: None)
  Receive Date: 20060511
  Receipt Date: 20060511
  Transmission Date: 20061013
  Serious: Yes (Hospitalization)
  Sender: FDA-Public Use
  Company Number: None

PATIENT
  Sex: Female
  Weight: 60.3 kg

DRUGS (12)
  1. IMATINIB MESYLATE  NOVARTIS [Suspect]
     Indication: GLIOBLASTOMA MULTIFORME
     Dosage: 400 MG DAILY PO
     Route: 048
     Dates: start: 20050824
  2. HYDREA [Suspect]
     Indication: GLIOBLASTOMA MULTIFORME
     Dosage: 500 MG BID PO
     Route: 048
     Dates: start: 20050824
  3. RAD001 [Suspect]
     Indication: GLIOBLASTOMA MULTIFORME
     Dosage: 5 MG PO DAILY
     Route: 048
     Dates: start: 20050824
  4. DEXAMETHASONE [Concomitant]
  5. MULTI-VITAMIN [Concomitant]
  6. PREVACID [Concomitant]
  7. AMBIEN [Concomitant]
  8. ALLEGRA [Concomitant]
  9. TOPROL-XL [Concomitant]
  10. DILANTIN [Concomitant]
  11. KEPPRA [Concomitant]
  12. LEXAPRO [Concomitant]

REACTIONS (9)
  - ACUTE RESPIRATORY DISTRESS SYNDROME [None]
  - ASTHENIA [None]
  - COUGH [None]
  - DISEASE PROGRESSION [None]
  - DYSPNOEA [None]
  - FATIGUE [None]
  - LUNG INFILTRATION [None]
  - PNEUMOCYSTIS JIROVECI PNEUMONIA [None]
  - PYREXIA [None]
